FAERS Safety Report 14928677 (Version 1)
Quarter: 2018Q2

REPORT INFORMATION
  Report Type: Spontaneous
  Country: US (occurrence: US)
  Receive Date: 20180504
  Receipt Date: 20180504
  Transmission Date: 20180711
  Serious: No
  Sender: FDA-Public Use
  Company Number: None

PATIENT
  Age: 52 Year
  Sex: Male

DRUGS (1)
  1. TEMOZOLOMIDE CAP 100MG [Suspect]
     Active Substance: TEMOZOLOMIDE
     Indication: BRAIN NEOPLASM MALIGNANT
     Dosage: 300MG 5 DAYS Q 28 D PO
     Route: 048
     Dates: start: 20171215

REACTIONS (1)
  - Seizure [None]

NARRATIVE: CASE EVENT DATE: 20180424
